FAERS Safety Report 8681518 (Version 5)
Quarter: 2014Q2

REPORT INFORMATION
  Report Type: Spontaneous
  Country: US (occurrence: US)
  Receive Date: 20120725
  Receipt Date: 20140403
  Transmission Date: 20141212
  Serious: Yes (Hospitalization)
  Sender: FDA-Public Use
  Company Number: US-UCBSA-062025

PATIENT
  Age: 74 Year
  Sex: Male
  Weight: 52 kg

DRUGS (6)
  1. KEPPRA XR [Suspect]
     Indication: CONVULSION
     Dosage: LOT NO:93356; EXPIRY DATE: 31-DEC-2015
     Dates: start: 2006
  2. KEPPRA XR [Suspect]
     Indication: AMYLOIDOSIS
     Dosage: LOT NO:93356; EXPIRY DATE: 31-DEC-2015
     Dates: start: 2006
  3. LISINOPRIL [Concomitant]
  4. NAMEDA [Concomitant]
     Indication: MEMORY IMPAIRMENT
  5. CENTRUM SILVER [Concomitant]
  6. MEGACE [Concomitant]
     Dates: start: 201311

REACTIONS (4)
  - Myocardial infarction [Recovered/Resolved]
  - Convulsion [Recovered/Resolved]
  - Parkinson^s disease [Recovered/Resolved]
  - Weight decreased [Recovering/Resolving]
